FAERS Safety Report 13539060 (Version 3)
Quarter: 2017Q2

REPORT INFORMATION
  Report Type: Report from Study
  Country: US (occurrence: US)
  Receive Date: 20170512
  Receipt Date: 20170623
  Transmission Date: 20170830
  Serious: Yes (Death, Other)
  Sender: FDA-Public Use
  Company Number: PHEH2017US014109

PATIENT
  Sex: Female
  Weight: 45 kg

DRUGS (1)
  1. ZOMETA [Suspect]
     Active Substance: ZOLEDRONIC ACID
     Indication: METASTASES TO BONE
     Dosage: 4 MG, QMO (EVERY 28 DAYS)
     Route: 042
     Dates: start: 20161018, end: 20170328

REACTIONS (4)
  - Plasma cell myeloma [Fatal]
  - Malignant neoplasm progression [Fatal]
  - Metastases to bone [Unknown]
  - Bone pain [Unknown]
